FAERS Safety Report 6491264-1 (Version None)
Quarter: 2009Q4

REPORT INFORMATION
  Report Type: 
  Country: None (occurrence: None)
  Receive Date: 20091211
  Receipt Date: 20091204
  Transmission Date: 20100525
  Serious: Yes (Hospitalization)
  Sender: FDA-Public Use
  Company Number: PHHO2009NL14483

PATIENT
  Sex: Male

DRUGS (3)
  1. NEORAL [Suspect]
     Indication: RENAL TRANSPLANT
     Dosage: UNK
     Route: 048
     Dates: start: 20090304
  2. CERTICAN [Suspect]
     Indication: RENAL TRANSPLANT
  3. PREDNISONE [Suspect]

REACTIONS (4)
  - DYSURIA [None]
  - POLLAKIURIA [None]
  - PYREXIA [None]
  - URINARY TRACT INFECTION [None]
